FAERS Safety Report 6926292-2 (Version None)
Quarter: 2010Q3

REPORT INFORMATION
  Report Type: 
  Country: None (occurrence: None)
  Receive Date: 20100816
  Receipt Date: 20100527
  Transmission Date: 20110219
  Serious: No
  Sender: FDA-Public Use
  Company Number: US-BAYER-201024116NA

PATIENT
  Sex: Female

DRUGS (1)
  1. MIRENA [Suspect]
     Indication: PRODUCT USED FOR UNKNOWN INDICATION
     Dosage: FREQUENCY: CONTINUOUS
     Route: 015
     Dates: start: 20070101

REACTIONS (9)
  - AMENORRHOEA [None]
  - BREAST TENDERNESS [None]
  - MALAISE [None]
  - MEDICAL DEVICE COMPLICATION [None]
  - NIPPLE PAIN [None]
  - OLIGOMENORRHOEA [None]
  - POST PROCEDURAL HAEMORRHAGE [None]
  - PREGNANCY WITH CONTRACEPTIVE DEVICE [None]
  - VOMITING [None]
